FAERS Safety Report 4642706-5 (Version None)
Quarter: 2005Q2

REPORT INFORMATION
  Report Type: 
  Country: None (occurrence: None)
  Receive Date: 20050422
  Receipt Date: 20050419
  Transmission Date: 20051028
  Serious: Yes (Life-Threatening, Hospitalization)
  Sender: FDA-Public Use
  Company Number: PHHO2005JP06385

PATIENT
  Age: 74 Year
  Sex: Female

DRUGS (8)
  1. DIOVAN [Suspect]
     Indication: HYPERTENSION
     Dosage: 80 MG, QD
     Route: 048
     Dates: start: 20030611, end: 20031029
  2. ARTIST [Concomitant]
     Indication: HYPERTENSION
  3. NIVADIL [Concomitant]
     Indication: HYPERTENSION
  4. TOYOFAROL [Concomitant]
     Indication: OSTEOPOROSIS
  5. MEVALOTIN [Concomitant]
     Indication: HYPERCHOLESTEROLAEMIA
  6. ELCITONIN [Concomitant]
     Indication: OSTEOPOROSIS
  7. BENET [Concomitant]
     Indication: OSTEOPOROSIS
  8. CEFOPERAZONE SODIUM (CEFOCEF) [Suspect]

REACTIONS (9)
  - CHILLS [None]
  - GASTROENTERITIS [None]
  - MALAISE [None]
  - OEDEMA PERIPHERAL [None]
  - OLIGURIA [None]
  - PHARYNGOLARYNGEAL PAIN [None]
  - PYREXIA [None]
  - RENAL FAILURE ACUTE [None]
  - VOMITING [None]
